FAERS Safety Report 16694077 (Version 1)
Quarter: 2019Q3

REPORT INFORMATION
  Report Type: Spontaneous
  Country: KR (occurrence: KR)
  Receive Date: 20190812
  Receipt Date: 20190812
  Transmission Date: 20191004
  Serious: Yes (Other)
  Sender: FDA-Public Use
  Company Number: KR-GLAXOSMITHKLINE-KR2019141317

PATIENT
  Sex: Female

DRUGS (1)
  1. LAMICTAL [Suspect]
     Active Substance: LAMOTRIGINE
     Indication: EPILEPSY
     Dosage: 100 MG, BID
     Route: 048

REACTIONS (6)
  - Suicidal ideation [Unknown]
  - Somnolence [Unknown]
  - Seizure [Unknown]
  - Product dose omission [Unknown]
  - Osteoporosis [Unknown]
  - Depression [Unknown]
